FAERS Safety Report 7373917 (Version 6)
Quarter: 2012Q4

REPORT INFORMATION
  Report Type: 
  Country: US (occurrence: US)
  Receive Date: 20100503
  Receipt Date: 20120918
  Transmission Date: 20130627
  Serious: Yes (Hospitalization)
  Sender: FDA-Public Use
  Company Number: US-BAYER-201020521NA

PATIENT
  Age: 29 Year
  Sex: Female
  Weight: 108 kg

DRUGS (3)
  1. YAZ [Suspect]
     Indication: PRODUCT USED FOR UNKNOWN INDICATION
     Route: 048
     Dates: start: 200710, end: 20080409
  2. YASMIN [Suspect]
     Indication: PRODUCT USED FOR UNKNOWN INDICATION
     Dosage: UNK
     Dates: start: 200403, end: 200612
  3. CHANTIX [Concomitant]
     Indication: EX-TOBACCO USER
     Dates: start: 20080409

REACTIONS (11)
  - Ischaemic stroke [Recovered/Resolved]
  - Hypoaesthesia [Recovered/Resolved]
  - Muscular weakness [Recovered/Resolved]
  - Cognitive disorder [Recovered/Resolved]
  - Speech disorder [Recovered/Resolved]
  - VIIth nerve paralysis [Recovered/Resolved]
  - Hypoaesthesia [Recovered/Resolved]
  - Facial paresis [Recovered/Resolved]
  - Dysarthria [Recovered/Resolved]
  - Grip strength decreased [Recovered/Resolved]
  - Hyporeflexia [Recovered/Resolved]
